FAERS Safety Report 13869680 (Version 2)
Quarter: 2018Q1

REPORT INFORMATION
  Report Type: Spontaneous
  Country: US (occurrence: US)
  Receive Date: 20170815
  Receipt Date: 20180131
  Transmission Date: 20180508
  Serious: Yes (Hospitalization, Other)
  Sender: FDA-Public Use
  Company Number: US-MYLANLABS-2017M1049912

PATIENT
  Age: 24 Year
  Sex: Male

DRUGS (5)
  1. BENZATROPINE [Concomitant]
     Active Substance: BENZTROPINE
     Indication: SCHIZOAFFECTIVE DISORDER
     Route: 065
  2. ESCITALOPRAM [Concomitant]
     Active Substance: ESCITALOPRAM OXALATE
     Indication: SCHIZOAFFECTIVE DISORDER
     Route: 065
  3. PALIPERIDONE. [Concomitant]
     Active Substance: PALIPERIDONE
     Indication: SCHIZOAFFECTIVE DISORDER
     Route: 065
  4. VALPROATE SEMISODIUM [Concomitant]
     Active Substance: DIVALPROEX SODIUM
     Indication: SCHIZOAFFECTIVE DISORDER
     Route: 065
  5. CLOZAPINE. [Suspect]
     Active Substance: CLOZAPINE
     Indication: SCHIZOAFFECTIVE DISORDER
     Route: 065

REACTIONS (6)
  - Eosinophilia [Recovering/Resolving]
  - Myocarditis [Unknown]
  - Pericarditis [Unknown]
  - Acute kidney injury [Unknown]
  - Pulmonary eosinophilia [Unknown]
  - Pleural effusion [Unknown]
